FAERS Safety Report 10897250 (Version 5)
Quarter: 2015Q2

REPORT INFORMATION
  Report Type: Spontaneous
  Country: US (occurrence: US)
  Receive Date: 20150309
  Receipt Date: 20150429
  Transmission Date: 20150821
  Serious: Yes (Other)
  Sender: FDA-Public Use
  Company Number: US-PFIZER INC-2015078983

PATIENT
  Age: 65 Year
  Sex: Female
  Weight: 50 kg

DRUGS (8)
  1. LYRICA [Suspect]
     Active Substance: PREGABALIN
     Indication: PAIN
     Dosage: 25 MG, 3X/DAY
     Route: 048
     Dates: start: 201209
  2. LYRICA [Suspect]
     Active Substance: PREGABALIN
     Indication: NECK PAIN
     Dosage: 300 MG, UNK
  3. LYRICA [Suspect]
     Active Substance: PREGABALIN
     Dosage: 75 MG, UNK
     Dates: start: 201503
  4. LYRICA [Suspect]
     Active Substance: PREGABALIN
     Indication: HEADACHE
     Dosage: 100 MG, 3X/DAY
     Dates: start: 201209
  5. LYRICA [Suspect]
     Active Substance: PREGABALIN
     Dosage: 150 MG, UNK
     Dates: start: 201403, end: 201503
  6. LYRICA [Suspect]
     Active Substance: PREGABALIN
     Dosage: 100 MG, UNK
     Dates: start: 201502
  7. LYRICA [Suspect]
     Active Substance: PREGABALIN
     Dosage: 50 MG IN THE MORNING AND 50 MG AT NIGHT
  8. METOPROLOL [Concomitant]
     Active Substance: METOPROLOL
     Indication: BLOOD PRESSURE ABNORMAL
     Dosage: 6.25 MG, 1X/DAY (25 MG TABLET THAT CONSUMER QUARTERS)
     Route: 048

REACTIONS (19)
  - Cerebrovascular accident [Unknown]
  - Feeling abnormal [Unknown]
  - Chills [Not Recovered/Not Resolved]
  - Irritability [Not Recovered/Not Resolved]
  - Personality change [Unknown]
  - Nausea [Unknown]
  - Depression [Unknown]
  - Drug withdrawal syndrome [Unknown]
  - Anger [Not Recovered/Not Resolved]
  - Panic attack [Unknown]
  - Anxiety [Unknown]
  - Drug ineffective [Not Recovered/Not Resolved]
  - Aggression [Unknown]
  - Insomnia [Not Recovered/Not Resolved]
  - Agitation [Not Recovered/Not Resolved]
  - Restlessness [Not Recovered/Not Resolved]
  - Blood pressure increased [Not Recovered/Not Resolved]
  - Psychomotor hyperactivity [Unknown]
  - Dizziness [Unknown]

NARRATIVE: CASE EVENT DATE: 201301
